FAERS Safety Report 7775815-2 (Version None)
Quarter: 2011Q3

REPORT INFORMATION
  Report Type: 
  Country: None (occurrence: None)
  Receive Date: 20110923
  Receipt Date: 20110920
  Transmission Date: 20111222
  Serious: Yes (Other)
  Sender: FDA-Public Use
  Company Number: PHEH2011US04860

PATIENT
  Age: 76 Year
  Sex: Female

DRUGS (2)
  1. RECLAST [Suspect]
     Indication: OSTEOPOROSIS
     Dosage: 5 MG, UNK
     Route: 042
  2. RECLAST [Suspect]
     Dosage: 5 MG, UNK
     Route: 042

REACTIONS (7)
  - ARTHRALGIA [None]
  - FATIGUE [None]
  - MUSCULOSKELETAL DISCOMFORT [None]
  - VERTIGO [None]
  - DEPRESSION [None]
  - DYSPHONIA [None]
  - CONTUSION [None]
